FAERS Safety Report 9541900 (Version 1)
Quarter: 2013Q3

REPORT INFORMATION
  Report Type: Spontaneous
  Country: US (occurrence: None)
  Receive Date: 20130919
  Receipt Date: 20130919
  Transmission Date: 20140515
  Serious: No
  Sender: FDA-Public Use
  Company Number: None

PATIENT
  Age: 67 Year
  Sex: Female

DRUGS (1)
  1. LIQUID FILLED ABSORBABLE CALCIUM 1200MG PLUS 1000 IU VITAMIN D3 [Suspect]
     Indication: BONE DENSITY DECREASED
     Dosage: 200, 2
     Route: 048
     Dates: start: 20130909

REACTIONS (1)
  - Dysphagia [None]
